FAERS Safety Report 19388945 (Version 2)
Quarter: 2021Q3

REPORT INFORMATION
  Report Type: Report from Study
  Country: DE (occurrence: DE)
  Receive Date: 20210607
  Receipt Date: 20210802
  Transmission Date: 20211014
  Serious: Yes (Life-Threatening, Hospitalization, Other)
  Sender: FDA-Public Use
  Company Number: DE-CELLTRION INC.-2021DE007447

PATIENT

DRUGS (1)
  1. TRUXIMA [Suspect]
     Active Substance: RITUXIMAB-ABBS
     Indication: LEUKAEMIA
     Dosage: 600 MG STRENGTH, ON DAY 1, 8, 15, AND 22 WEEKLY
     Route: 042
     Dates: start: 20200429, end: 20200716

REACTIONS (14)
  - Fatigue [Recovered/Resolved]
  - Dysphagia [Recovered/Resolved]
  - Pyrexia [Unknown]
  - Anaemia [Unknown]
  - Presyncope [Unknown]
  - Oral pain [Recovered/Resolved]
  - Nausea [Recovered/Resolved]
  - Diarrhoea [Unknown]
  - Infusion related reaction [Unknown]
  - Off label use [Unknown]
  - Stomatitis [Recovered/Resolved]
  - Herpes simplex [Recovered/Resolved]
  - Paraesthesia [Recovered/Resolved]
  - Hypotension [Recovered/Resolved]

NARRATIVE: CASE EVENT DATE: 20200525
